FAERS Safety Report 4770739-7 (Version None)
Quarter: 2005Q3

REPORT INFORMATION
  Report Type: 
  Country: None (occurrence: None)
  Receive Date: 20050915
  Receipt Date: 20050907
  Transmission Date: 20060218
  Serious: Yes (Death)
  Sender: FDA-Public Use
  Company Number: US-MERCK-0509USA00883

PATIENT
  Sex: Male

DRUGS (2)
  1. VIOXX [Suspect]
     Route: 048
  2. BEXTRA [Suspect]
     Route: 048

REACTIONS (2)
  - ANGINA PECTORIS [None]
  - CHEST PAIN [None]
